FAERS Safety Report 23075692 (Version 1)
Quarter: 2023Q4

REPORT INFORMATION
  Report Type: Report from Study
  Country: US (occurrence: US)
  Receive Date: 20231017
  Receipt Date: 20231017
  Transmission Date: 20240109
  Serious: Yes (Life-Threatening, Hospitalization)
  Sender: FDA-Public Use
  Company Number: US-ARGENX-2023-ARGX-US002824

PATIENT

DRUGS (1)
  1. VYVGART [Suspect]
     Active Substance: EFGARTIGIMOD ALFA-FCAB
     Indication: Product used for unknown indication
     Dosage: UNK

REACTIONS (9)
  - Colon operation [Unknown]
  - Hypopnoea [Unknown]
  - Respiratory rate increased [Unknown]
  - Heart rate increased [Unknown]
  - Flushing [Unknown]
  - Dizziness [Unknown]
  - Fatigue [Unknown]
  - Dyspnoea [Unknown]
  - Asthenia [Unknown]
